FAERS Safety Report 8421371-5 (Version None)
Quarter: 2012Q2

REPORT INFORMATION
  Report Type: 
  Country: None (occurrence: None)
  Receive Date: 20120608
  Receipt Date: 20120601
  Transmission Date: 20120825
  Serious: Yes (Other)
  Sender: FDA-Public Use
  Company Number: PHHY2012GB030704

PATIENT
  Age: 51 Year
  Sex: Male

DRUGS (5)
  1. CLOZAPINE [Suspect]
     Dates: start: 20060701
  2. AMISULPRIDE [Concomitant]
  3. CLOZAPINE [Suspect]
     Dosage: 225 MG, DAILY
     Dates: start: 20091101
  4. ARIPIPRAZOLE [Concomitant]
  5. ANTIPSYCHOTICS [Concomitant]

REACTIONS (11)
  - PSYCHOTIC DISORDER [None]
  - EUPHORIC MOOD [None]
  - WHITE BLOOD CELL COUNT DECREASED [None]
  - ACUTE PSYCHOSIS [None]
  - HALLUCINATION, AUDITORY [None]
  - NEUTROPHIL COUNT DECREASED [None]
  - INFLUENZA LIKE ILLNESS [None]
  - BLOOD DISORDER [None]
  - MENTAL IMPAIRMENT [None]
  - SOMATIC HALLUCINATION [None]
  - DELUSION [None]
